FAERS Safety Report 16577006 (Version 1)
Quarter: 2019Q3

REPORT INFORMATION
  Report Type: Spontaneous
  Country: DE (occurrence: DE)
  Receive Date: 20190716
  Receipt Date: 20190716
  Transmission Date: 20191004
  Serious: Yes (Other)
  Sender: FDA-Public Use
  Company Number: PHHY2019DE159731

PATIENT
  Age: 74 Year
  Sex: Male

DRUGS (1)
  1. PACLITAXEL. [Suspect]
     Active Substance: PACLITAXEL
     Indication: SKIN ANGIOSARCOMA
     Dosage: 80 MG/M2, QW
     Route: 065
     Dates: end: 201605

REACTIONS (4)
  - Therapy partial responder [Unknown]
  - Product use in unapproved indication [Unknown]
  - Eastern Cooperative Oncology Group performance status worsened [Unknown]
  - Neuropathy peripheral [Unknown]
